FAERS Safety Report 16821431 (Version 1)
Quarter: 2019Q3

REPORT INFORMATION
  Report Type: Spontaneous
  Country: KR (occurrence: KR)
  Receive Date: 20190918
  Receipt Date: 20190918
  Transmission Date: 20191005
  Serious: Yes (Other)
  Sender: FDA-Public Use
  Company Number: KR-SA-2019SA254777

PATIENT
  Age: 84 Year
  Sex: Female

DRUGS (10)
  1. PREDNISONE. [Suspect]
     Active Substance: PREDNISONE
     Dosage: 40 MG, QD (TAPERED) FOR 2 WEEKS
  2. PREDNISOLONE ACETATE. [Suspect]
     Active Substance: PREDNISOLONE ACETATE
     Indication: INFECTIVE UVEITIS
     Dosage: EYE DROP, OU
  3. PREDNISONE. [Suspect]
     Active Substance: PREDNISONE
     Indication: INFECTIVE UVEITIS
     Dosage: 60MG, QD FOR 1 WEEK
     Route: 048
  4. RIFAMPICIN [Suspect]
     Active Substance: RIFAMPIN
     Indication: INFECTIVE UVEITIS
     Dosage: SYSTEMIC
  5. PREDNISONE. [Suspect]
     Active Substance: PREDNISONE
     Dosage: 10 MG EVERY 2 - 3 WEEKS
  6. ISONIAZID. [Suspect]
     Active Substance: ISONIAZID
     Indication: INFECTIVE UVEITIS
     Dosage: SYSTEMIC
  7. MOXIFLOXACIN HYDROCHLORIDE. [Suspect]
     Active Substance: MOXIFLOXACIN HYDROCHLORIDE
     Indication: INFECTIVE UVEITIS
     Dosage: SYSTEMIC
  8. PREDNISONE. [Suspect]
     Active Substance: PREDNISONE
     Dosage: 20 MG, QD
  9. PREDNISONE. [Suspect]
     Active Substance: PREDNISONE
     Dosage: SLOW TAPERING
  10. PYRAZINAMIDE. [Suspect]
     Active Substance: PYRAZINAMIDE
     Indication: INFECTIVE UVEITIS
     Dosage: SYSTEMIC

REACTIONS (5)
  - Macular oedema [Recovered/Resolved]
  - Treatment noncompliance [Recovered/Resolved]
  - Eye inflammation [Recovered/Resolved]
  - Vitreous haze [Recovered/Resolved]
  - Infective uveitis [Recovered/Resolved]
